FAERS Safety Report 10209474 (Version 2)
Quarter: 2014Q2

REPORT INFORMATION
  Report Type: Spontaneous
  Country: DE (occurrence: DE)
  Receive Date: 20140601
  Receipt Date: 20140606
  Transmission Date: 20141212
  Serious: Yes (Hospitalization, Other)
  Sender: FDA-Public Use
  Company Number: DE-JNJFOC-20140516945

PATIENT
  Age: 84 Year
  Sex: Female

DRUGS (6)
  1. XARELTO [Suspect]
     Indication: CEREBROVASCULAR ACCIDENT PROPHYLAXIS
     Route: 048
  2. XARELTO [Suspect]
     Indication: ATRIAL FIBRILLATION
     Route: 048
  3. BELOC ZOK [Concomitant]
     Route: 065
  4. ISDN [Concomitant]
     Route: 065
  5. CORDAREX [Concomitant]
     Route: 065
  6. DELIX [Concomitant]
     Route: 065

REACTIONS (5)
  - Transient ischaemic attack [Recovering/Resolving]
  - Aphasia [Unknown]
  - Asthenia [Unknown]
  - Disorientation [Unknown]
  - Hypertensive crisis [Unknown]
